FAERS Safety Report 14807493 (Version 1)
Quarter: 2018Q2

REPORT INFORMATION
  Report Type: Spontaneous
  Country: GB (occurrence: AT)
  Receive Date: 20180425
  Receipt Date: 20180425
  Transmission Date: 20180711
  Serious: Yes (Hospitalization)
  Sender: FDA-Public Use
  Company Number: AT-FRESENIUS KABI-FK201804785

PATIENT
  Age: 69 Year
  Sex: Female

DRUGS (1)
  1. CEFUROXIM FRESENIUS 1500 MG [Suspect]
     Active Substance: CEFUROXIME
     Indication: ORTHOPAEDIC PROCEDURE
     Route: 065
     Dates: start: 20180207, end: 20180207

REACTIONS (7)
  - Type I hypersensitivity [Recovered/Resolved]
  - Circulatory collapse [Recovered/Resolved]
  - Dyspnoea [Recovered/Resolved]
  - Swollen tongue [Recovered/Resolved]
  - Pruritus [Recovered/Resolved]
  - Sense of oppression [Recovered/Resolved]
  - Cough [Recovered/Resolved]

NARRATIVE: CASE EVENT DATE: 20180207
